FAERS Safety Report 9812672 (Version 1)
Quarter: 2014Q1

REPORT INFORMATION
  Report Type: Report from Study
  Country: US (occurrence: US)
  Receive Date: 20140113
  Receipt Date: 20140113
  Transmission Date: 20141002
  Serious: Yes (Life-Threatening, Hospitalization)
  Sender: FDA-Public Use
  Company Number: US-JNJFOC-20140104648

PATIENT
  Age: 31 Year
  Sex: Male

DRUGS (1)
  1. NUCYNTA ER [Suspect]
     Indication: BACK PAIN
     Dosage: 2 WEEKS AGO
     Route: 065

REACTIONS (10)
  - Restless legs syndrome [Unknown]
  - Tachycardia [Recovered/Resolved]
  - Hypertension [Not Recovered/Not Resolved]
  - Toxicity to various agents [Unknown]
  - Drug dependence [Unknown]
  - Anxiety [Unknown]
  - Tremor [Unknown]
  - Muscle spasms [Unknown]
  - Flushing [Unknown]
  - Somnolence [Unknown]
